FAERS Safety Report 8920846 (Version 1)
Quarter: 2012Q4

REPORT INFORMATION
  Report Type: 
  Country: US (occurrence: US)
  Receive Date: 20121121
  Receipt Date: 20121121
  Transmission Date: 20130627
  Serious: Yes (Other)
  Sender: FDA-Public Use
  Company Number: US-BAYER-2011-088197

PATIENT
  Age: 72 Year
  Sex: Male

DRUGS (3)
  1. SORAFENIB (RAF KINASE INHIBITOR) [Suspect]
     Indication: LIVER, CANCER OF
     Dosage: 200 mg, BID
     Route: 048
     Dates: start: 201108
  2. SORAFENIB (RAF KINASE INHIBITOR) [Suspect]
     Indication: LIVER, CANCER OF
     Dosage: 400 mg, BID
     Route: 048
     Dates: start: 201109
  3. MIRALAX [Concomitant]
     Indication: CONSTIPATION

REACTIONS (8)
  - Rash pruritic [Recovered/Resolved]
  - Rash erythematous [Recovered/Resolved]
  - Abdominal pain upper [Not Recovered/Not Resolved]
  - Flatulence [Not Recovered/Not Resolved]
  - Dyspepsia [Not Recovered/Not Resolved]
  - Diarrhoea [Recovered/Resolved]
  - Dehydration [Recovered/Resolved]
  - Loss of consciousness [Recovered/Resolved]
